FAERS Safety Report 9096872 (Version 4)
Quarter: 2013Q2

REPORT INFORMATION
  Report Type: Report from Study
  Country: AU (occurrence: AU)
  Receive Date: 20130211
  Receipt Date: 20130430
  Transmission Date: 20140414
  Serious: Yes (Hospitalization, Disabling, Other)
  Sender: FDA-Public Use
  Company Number: PHHY2013AU011880

PATIENT
  Age: 40 Year
  Sex: Male

DRUGS (3)
  1. CLOZARIL [Suspect]
     Dosage: UNK
  2. CLOZARIL [Suspect]
     Dosage: 50 MG, UNK
  3. CLOZARIL [Suspect]
     Dosage: UNK
     Dates: start: 20130218

REACTIONS (7)
  - Consciousness fluctuating [Not Recovered/Not Resolved]
  - Movement disorder [Unknown]
  - Tremor [Not Recovered/Not Resolved]
  - Body temperature increased [Recovering/Resolving]
  - Malaise [Unknown]
  - White blood cell count increased [Unknown]
  - Neutrophil count increased [Unknown]
